FAERS Safety Report 9059250 (Version 1)
Quarter: 2013Q1

REPORT INFORMATION
  Report Type: Report from Study
  Country: GB (occurrence: GB)
  Receive Date: 20130211
  Receipt Date: 20130211
  Transmission Date: 20140127
  Serious: Yes (Death, Hospitalization, Other)
  Sender: FDA-Public Use
  Company Number: GB-ROCHE-1185123

PATIENT
  Age: 75 None
  Sex: Male
  Weight: 68 kg

DRUGS (1)
  1. RITUXIMAB [Suspect]
     Indication: RHEUMATOID ARTHRITIS
     Dosage: DATE OF MOST RECENT DOSE 30/MAY/2012.
     Route: 065
     Dates: start: 20090112

REACTIONS (6)
  - Pneumonia [Fatal]
  - Pneumonia [Unknown]
  - Amyloidosis [Unknown]
  - Left ventricular failure [Unknown]
  - Renal failure chronic [Unknown]
  - Anaemia [Unknown]
